FAERS Safety Report 7938960-4 (Version None)
Quarter: 2011Q4

REPORT INFORMATION
  Report Type: 
  Country: None (occurrence: None)
  Receive Date: 20111124
  Receipt Date: 20111122
  Transmission Date: 20120403
  Serious: No
  Sender: FDA-Public Use
  Company Number: US-PFIZER INC-2011286008

PATIENT
  Sex: Female
  Weight: 138 kg

DRUGS (6)
  1. LOPRESSOR [Concomitant]
     Indication: HYPERTENSION
     Dosage: 50 MG, 4X/DAY
     Route: 048
  2. SLOW-K [Suspect]
     Indication: BLOOD POTASSIUM DECREASED
     Dosage: 2X/DAY
     Route: 048
  3. LASIX [Suspect]
     Indication: OEDEMA PERIPHERAL
     Dosage: 80 MG, DAILY
     Route: 048
  4. CRESTOR [Concomitant]
     Indication: BLOOD CHOLESTEROL INCREASED
     Dosage: 10 MG, UNK
     Route: 048
  5. DETROL [Suspect]
     Indication: URINARY INCONTINENCE
     Dosage: 2 MG, 2X/DAY
     Route: 048
     Dates: start: 20090101
  6. POTASSIUM ACETATE [Suspect]
     Indication: BLOOD POTASSIUM DECREASED
     Dosage: UNK

REACTIONS (4)
  - OEDEMA PERIPHERAL [None]
  - DRY MOUTH [None]
  - BLOOD POTASSIUM DECREASED [None]
  - DRUG INEFFECTIVE [None]
